FAERS Safety Report 7539856 (Version 4)
Quarter: 2021Q3

REPORT INFORMATION
  Report Type: Spontaneous
  Country: FR (occurrence: FR)
  Receive Date: 20100813
  Receipt Date: 20210701
  Transmission Date: 20211014
  Serious: Yes (Death, Life-Threatening, Other)
  Sender: FDA-Public Use
  Company Number: PHHY2010FR52885

PATIENT
  Age: 38 Year
  Sex: Female

DRUGS (15)
  1. MYCOPHENOLATE [Suspect]
     Active Substance: MYCOPHENOLIC ACID
     Indication: PROPHYLAXIS AGAINST GRAFT VERSUS HOST DISEASE
  2. VORICONAZOLE. [Suspect]
     Active Substance: VORICONAZOLE
     Indication: SCOPULARIOPSIS INFECTION
     Dosage: 400 MG, QD (200 MG, 2X/DAY)
     Route: 065
  3. AMPHOTERICIN B LIPID COMPLEX [Suspect]
     Active Substance: AMPHOTERICIN B
     Indication: SCOPULARIOPSIS INFECTION
  4. AMPHOTERICIN B LIPID COMPLEX [Suspect]
     Active Substance: AMPHOTERICIN B
     Indication: SCOPULARIOPSIS INFECTION
  5. MYCOPHENOLATE [Suspect]
     Active Substance: MYCOPHENOLIC ACID
     Indication: ALLOGENIC STEM CELL TRANSPLANTATION
     Dosage: UNK
     Route: 065
     Dates: start: 2007
  6. CEFTAZIDIME. [Concomitant]
     Active Substance: CEFTAZIDIME
     Indication: BACTERIAL INFECTION
     Route: 065
  7. CEFTAZIDIME. [Concomitant]
     Active Substance: CEFTAZIDIME
     Indication: BACTERIAL INFECTION
  8. CICLOSPORIN [Suspect]
     Active Substance: CYCLOSPORINE
     Indication: ALLOGENIC STEM CELL TRANSPLANTATION
     Dosage: UNK
     Route: 065
     Dates: start: 2007
  9. CICLOSPORIN [Suspect]
     Active Substance: CYCLOSPORINE
     Indication: PROPHYLAXIS AGAINST GRAFT VERSUS HOST DISEASE
  10. TEICOPLANINE [Concomitant]
     Active Substance: TEICOPLANIN
     Indication: BACTERIAL INFECTION
     Route: 065
  11. CASPOFUNGIN ACETATE. [Concomitant]
     Active Substance: CASPOFUNGIN ACETATE
     Indication: SCOPULARIOPSIS INFECTION
     Dosage: 70 MG, UNK (LOADING DOSE)
     Route: 065
  12. CASPOFUNGIN ACETATE. [Concomitant]
     Active Substance: CASPOFUNGIN ACETATE
     Indication: SCOPULARIOPSIS INFECTION
     Dosage: 50 MG, DAILY
     Route: 065
  13. AMPHOTERICIN B LIPID COMPLEX [Suspect]
     Active Substance: AMPHOTERICIN B
     Indication: BRONCHOPULMONARY ASPERGILLOSIS
     Dosage: 3 MG/KG, QD
     Route: 065
  14. AMPHOTERICIN B LIPID COMPLEX [Suspect]
     Active Substance: AMPHOTERICIN B
     Indication: BRONCHOPULMONARY ASPERGILLOSIS
     Dosage: 10 MG/KG, QD
     Route: 065
  15. TEICOPLANINE [Concomitant]
     Active Substance: TEICOPLANIN
     Indication: BACTERIAL INFECTION

REACTIONS (12)
  - Multiple organ dysfunction syndrome [Fatal]
  - Chronic graft versus host disease [Recovering/Resolving]
  - Inflammation [Fatal]
  - Graft versus host disease in gastrointestinal tract [Recovering/Resolving]
  - Graft versus host disease in liver [Recovering/Resolving]
  - Fungal test positive [Fatal]
  - Renal disorder [Fatal]
  - Drug ineffective [Unknown]
  - Systemic mycosis [Fatal]
  - Graft versus host disease in skin [Recovering/Resolving]
  - Lung disorder [Fatal]
  - Skin necrosis [Fatal]
